FAERS Safety Report 12419269 (Version 1)
Quarter: 2016Q2

REPORT INFORMATION
  Report Type: Spontaneous
  Country: US (occurrence: None)
  Receive Date: 20160527
  Receipt Date: 20160527
  Transmission Date: 20160815
  Serious: No
  Sender: FDA-Public Use
  Company Number: None

PATIENT
  Age: 73 Year
  Sex: Male

DRUGS (1)
  1. LEUKERAN [Suspect]
     Active Substance: CHLORAMBUCIL
     Dosage: LEUKARAN 2MG 19 TABS (38MG PO
     Route: 048

REACTIONS (5)
  - Peripheral swelling [None]
  - Skin discolouration [None]
  - Swelling face [None]
  - Rash [None]
  - Body temperature fluctuation [None]

NARRATIVE: CASE EVENT DATE: 20160526
